FAERS Safety Report 12676749 (Version 2)
Quarter: 2016Q4

REPORT INFORMATION
  Report Type: Other
  Country: SE (occurrence: SE)
  Receive Date: 20160823
  Receipt Date: 20161014
  Transmission Date: 20170207
  Serious: Yes (Other)
  Sender: FDA-Public Use
  Company Number: SE-CELLTRION INC.-2016SE008124

PATIENT

DRUGS (4)
  1. REMSIMA [Suspect]
     Active Substance: INFLIXIMAB
     Dosage: 500 MG, UNK
     Route: 065
  2. REMSIMA [Suspect]
     Active Substance: INFLIXIMAB
     Dosage: 500 MG, UNK
     Route: 065
     Dates: start: 20160630, end: 20160630
  3. REMSIMA [Suspect]
     Active Substance: INFLIXIMAB
     Indication: PSORIATIC ARTHROPATHY
     Dosage: 500 MG, UNK
     Route: 065
     Dates: start: 20151124, end: 20151124
  4. REMSIMA [Suspect]
     Active Substance: INFLIXIMAB
     Dosage: 500 MG, UNK
     Route: 065

REACTIONS (2)
  - Periorbital oedema [Recovered/Resolved]
  - Urticaria [Recovered/Resolved]

NARRATIVE: CASE EVENT DATE: 20160630
